FAERS Safety Report 6164168-1 (Version None)
Quarter: 2009Q2

REPORT INFORMATION
  Report Type: 
  Country: None (occurrence: None)
  Receive Date: 20090420
  Receipt Date: 20090319
  Transmission Date: 20091009
  Serious: Yes (Disabling, Other)
  Sender: FDA-Public Use
  Company Number: ADR0972009

PATIENT
  Age: 84 Year
  Sex: Female

DRUGS (4)
  1. ALENDRONATE SODIUM [Suspect]
     Dates: start: 20061026
  2. LEVOTHYROXINE SODIUM [Concomitant]
  3. METOPROLOL [Concomitant]
  4. NITRAZEPAM [Concomitant]

REACTIONS (2)
  - BONE PAIN [None]
  - MUSCULAR WEAKNESS [None]
